FAERS Safety Report 6218618-2 (Version None)
Quarter: 2009Q2

REPORT INFORMATION
  Report Type: 
  Country: None (occurrence: None)
  Receive Date: 20090608
  Receipt Date: 20090601
  Transmission Date: 20091009
  Serious: Yes (Hospitalization)
  Sender: FDA-Public Use
  Company Number: US-AVENTIS-200914019US

PATIENT
  Sex: Male
  Weight: 249.48 kg

DRUGS (12)
  1. LANTUS [Suspect]
     Route: 058
  2. ASPIRIN [Concomitant]
  3. IMDUR [Concomitant]
  4. NOVOLOG [Concomitant]
     Dosage: DOSE: PER SLIDING SCALE WITH MEALS
  5. LIPITOR [Concomitant]
  6. LISINOPRIL [Concomitant]
  7. METFORMIN HYDROCHLORIDE [Concomitant]
  8. NITROGLYCERIN [Concomitant]
     Dosage: DOSE: SUBLINGUAL  AS NEEDED
     Route: 060
  9. OMEPRAZOLE [Concomitant]
  10. OXYCODONE HCL [Concomitant]
     Dosage: DOSE: 30 MG EVERY 8 HOURS
  11. OXYCONTIN [Concomitant]
     Dosage: DOSE: 160 MG EVERY 6 HOURS
  12. TOPROL-XL [Concomitant]

REACTIONS (11)
  - BLOOD GLUCOSE INCREASED [None]
  - CHEST PAIN [None]
  - DIABETES MELLITUS INADEQUATE CONTROL [None]
  - DISORIENTATION [None]
  - DIZZINESS [None]
  - DYSPNOEA [None]
  - HYPERHIDROSIS [None]
  - HYPOGLYCAEMIA [None]
  - MALAISE [None]
  - NAUSEA [None]
  - TREMOR [None]
